FAERS Safety Report 25532659 (Version 2)
Quarter: 2025Q3

REPORT INFORMATION
  Report Type: Report from Study
  Country: US (occurrence: US)
  Receive Date: 20250709
  Receipt Date: 20250712
  Transmission Date: 20251021
  Serious: Yes (Other)
  Sender: ABBVIE
  Company Number: US-ABBVIE-6360254

PATIENT
  Age: 65 Year
  Sex: Female

DRUGS (2)
  1. SYNTHROID [Suspect]
     Active Substance: LEVOTHYROXINE SODIUM
     Indication: Product used for unknown indication
     Route: 048
  2. WEGOVY [Suspect]
     Active Substance: SEMAGLUTIDE
     Indication: Obesity
     Route: 065

REACTIONS (7)
  - Coronary artery occlusion [Recovered/Resolved]
  - Illness [Recovering/Resolving]
  - Bronchitis [Recovered/Resolved]
  - Ear infection [Recovered/Resolved]
  - Hunger [Recovering/Resolving]
  - Insomnia [Recovered/Resolved]
  - Thyroid function test abnormal [Recovering/Resolving]

NARRATIVE: CASE EVENT DATE: 20250602
